FAERS Safety Report 25471719 (Version 1)
Quarter: 2025Q2

REPORT INFORMATION
  Report Type: Spontaneous
  Country: US (occurrence: US)
  Receive Date: 20250624
  Receipt Date: 20250624
  Transmission Date: 20250717
  Serious: No
  Sender: ROCHE
  Company Number: US-ROCHE-10000316689

PATIENT
  Sex: Female

DRUGS (11)
  1. XOLAIR [Suspect]
     Active Substance: OMALIZUMAB
     Indication: Chronic spontaneous urticaria
     Route: 058
     Dates: start: 202506
  2. CLADRIBINE [Concomitant]
     Active Substance: CLADRIBINE
  3. OXCARBAZEPINE [Concomitant]
     Active Substance: OXCARBAZEPINE
  4. RIZATRIPTAN [Concomitant]
     Active Substance: RIZATRIPTAN
  5. CETIRIZINE [Concomitant]
     Active Substance: CETIRIZINE HYDROCHLORIDE
  6. MONTELUKAST [Concomitant]
     Active Substance: MONTELUKAST
  7. FAMOTIDINE [Concomitant]
     Active Substance: FAMOTIDINE
  8. ALLEGRA [Concomitant]
     Active Substance: FEXOFENADINE HYDROCHLORIDE
  9. CLOBETASOL [Concomitant]
     Active Substance: CLOBETASOL
  10. Topical diclofenac [Concomitant]
     Route: 061
  11. CELECOXIB [Concomitant]
     Active Substance: CELECOXIB

REACTIONS (4)
  - Headache [Unknown]
  - Nausea [Unknown]
  - Neck pain [Unknown]
  - Musculoskeletal stiffness [Unknown]
